FAERS Safety Report 7073117-3 (Version None)
Quarter: 2010Q4

REPORT INFORMATION
  Report Type: 
  Country: None (occurrence: None)
  Receive Date: 20101029
  Receipt Date: 20100426
  Transmission Date: 20110411
  Serious: No
  Sender: FDA-Public Use
  Company Number: A0856766A

PATIENT
  Age: 70 Year
  Sex: Male

DRUGS (17)
  1. ADVAIR DISKUS 100/50 [Suspect]
     Indication: PRODUCT USED FOR UNKNOWN INDICATION
     Dosage: 1PUFF TWICE PER DAY
     Route: 055
     Dates: start: 20100421
  2. CALTRATE [Concomitant]
  3. VITAMIN D [Concomitant]
  4. SIMVASTATIN [Concomitant]
  5. ASPIRIN [Concomitant]
  6. CHOLESTOFF [Concomitant]
  7. FINASTERIDE [Concomitant]
  8. LOVAZA [Concomitant]
  9. FLOMAX [Concomitant]
  10. STOOL SOFTENER [Concomitant]
  11. GLUCOSAMINE [Concomitant]
  12. NAPROXEN SODIUM [Concomitant]
  13. METFORMIN [Concomitant]
  14. LISINOPRIL [Concomitant]
  15. SULFACETAMIDE SODIUM [Concomitant]
  16. LORAZEPAM [Concomitant]
  17. LAXATIVE [Concomitant]

REACTIONS (2)
  - DYSPHONIA [None]
  - NON-CARDIAC CHEST PAIN [None]
